FAERS Safety Report 9046690 (Version 1)
Quarter: 2013Q1

REPORT INFORMATION
  Report Type: Spontaneous
  Country: US (occurrence: US)
  Receive Date: 20130204
  Receipt Date: 20130204
  Transmission Date: 20140127
  Serious: No
  Sender: FDA-Public Use
  Company Number: US-BIOGENIDEC-2013BI008220

PATIENT
  Age: 45 Year
  Sex: Female

DRUGS (1)
  1. TYSABRI [Suspect]
     Indication: MULTIPLE SCLEROSIS
     Route: 042
     Dates: start: 20091210

REACTIONS (7)
  - Swelling face [Recovered/Resolved]
  - Toothache [Recovered/Resolved]
  - Temporomandibular joint syndrome [Not Recovered/Not Resolved]
  - Muscle spasms [Recovered/Resolved]
  - Musculoskeletal pain [Not Recovered/Not Resolved]
  - Tooth infection [Recovered/Resolved]
  - Headache [Not Recovered/Not Resolved]
